FAERS Safety Report 25432983 (Version 1)
Quarter: 2025Q2

REPORT INFORMATION
  Report Type: Spontaneous
  Country: US (occurrence: None)
  Receive Date: 20250613
  Receipt Date: 20250613
  Transmission Date: 20250717
  Serious: Yes (Hospitalization, Other)
  Sender: MDD OPERATIONS
  Company Number: US-MDD US Operations-MDD202405-001952

PATIENT
  Age: 74 Year
  Sex: Female

DRUGS (6)
  1. APOKYN [Suspect]
     Active Substance: APOMORPHINE HYDROCHLORIDE
     Indication: Parkinson^s disease
     Route: 058
     Dates: start: 20230809
  2. APOKYN [Suspect]
     Active Substance: APOMORPHINE HYDROCHLORIDE
     Route: 058
     Dates: start: 20230809
  3. CARBIDOPA [Concomitant]
     Active Substance: CARBIDOPA
  4. LEVODOPA [Concomitant]
     Active Substance: LEVODOPA
  5. AMANTADINE [Concomitant]
     Active Substance: AMANTADINE
  6. TRAMADOL [Concomitant]
     Active Substance: TRAMADOL

REACTIONS (7)
  - Fall [Recovering/Resolving]
  - Pelvic fracture [Recovering/Resolving]
  - Fall [Recovering/Resolving]
  - Compression fracture [Recovering/Resolving]
  - Pneumonia [Unknown]
  - Thoracic vertebral fracture [Unknown]
  - Fall [Unknown]

NARRATIVE: CASE EVENT DATE: 20240312
